FAERS Safety Report 6131419-9 (Version None)
Quarter: 2009Q1

REPORT INFORMATION
  Report Type: 
  Country: None (occurrence: None)
  Receive Date: 20090325
  Receipt Date: 20080605
  Transmission Date: 20090719
  Serious: Yes (Other)
  Sender: FDA-Public Use
  Company Number: US-BRISTOL-MYERS SQUIBB COMPANY-14217871

PATIENT
  Sex: Male

DRUGS (4)
  1. ERBITUX [Suspect]
     Indication: RECTAL CANCER
     Dates: start: 20080605, end: 20080605
  2. BENADRYL [Concomitant]
     Indication: PREMEDICATION
  3. PEPCID [Concomitant]
     Indication: PREMEDICATION
  4. ALBUTEROL [Concomitant]
     Indication: PREMEDICATION

REACTIONS (1)
  - URTICARIA [None]
